FAERS Safety Report 4495875-4 (Version None)
Quarter: 2004Q4

REPORT INFORMATION
  Report Type: 
  Country: None (occurrence: None)
  Receive Date: 20041104
  Receipt Date: 20041029
  Transmission Date: 20050328
  Serious: Yes (Death)
  Sender: FDA-Public Use
  Company Number: USA-2004-0017461

PATIENT
  Sex: Female

DRUGS (3)
  1. OXYCONTIN [Suspect]
  2. DOXEPIN (DOXEPIN) [Concomitant]
  3. CELEBREX [Concomitant]

REACTIONS (3)
  - DRUG TOXICITY [None]
  - OVERDOSE [None]
  - ROAD TRAFFIC ACCIDENT [None]
